FAERS Safety Report 5158326-2 (Version None)
Quarter: 2006Q4

REPORT INFORMATION
  Report Type: 
  Country: None (occurrence: None)
  Receive Date: 20061128
  Receipt Date: 20060717
  Transmission Date: 20070319
  Serious: Yes (Death)
  Sender: FDA-Public Use
  Company Number: US-PURDUE-USA_2006_0024651

PATIENT
  Age: 19 Year
  Sex: Female
  Weight: 87 kg

DRUGS (2)
  1. OXYCONTIN [Suspect]
     Indication: DRUG ABUSER
     Dosage: UNK, UNK
  2. COCAINE [Suspect]
     Indication: DRUG ABUSER
     Dosage: UNK UNK, UNK

REACTIONS (3)
  - ASPHYXIA [None]
  - MULTIPLE DRUG OVERDOSE INTENTIONAL [None]
  - SUBSTANCE ABUSE [None]
